FAERS Safety Report 8240266-3 (Version None)
Quarter: 2012Q1

REPORT INFORMATION
  Report Type: 
  Country: None (occurrence: None)
  Receive Date: 20120328
  Receipt Date: 20120328
  Transmission Date: 20120608
  Serious: No
  Sender: FDA-Public Use
  Company Number: None

PATIENT
  Sex: Female
  Weight: 47.627 kg

DRUGS (2)
  1. WELLBUTRIN SR [Concomitant]
     Dosage: SR 100MG AND ALSO 150MG
     Route: 048
     Dates: start: 20120201, end: 20120301
  2. WELLBUTRIN XL [Suspect]
     Indication: DEPRESSED MOOD
     Dosage: XL 150MG
     Route: 048
     Dates: start: 20110201, end: 20110205

REACTIONS (3)
  - HEADACHE [None]
  - TINNITUS [None]
  - PRODUCT SUBSTITUTION ISSUE [None]
